FAERS Safety Report 5313295-7 (Version None)
Quarter: 2007Q2

REPORT INFORMATION
  Report Type: 
  Country: None (occurrence: None)
  Receive Date: 20070501
  Receipt Date: 20070420
  Transmission Date: 20071010
  Serious: Yes (Other)
  Sender: FDA-Public Use
  Company Number: PHHO2007BR05710

PATIENT
  Age: 67 Year
  Sex: Female

DRUGS (4)
  1. DIOVAN [Suspect]
     Indication: HYPERTENSION
     Dosage: 160/5MG DAILY
     Route: 048
  2. DIOVAN [Suspect]
     Indication: HYPERTENSION
     Dosage: 80 MG, UNK
     Route: 048
  3. DIOVAN HCT [Suspect]
     Indication: HYPERTENSION
     Dosage: 160/25MG
     Route: 048
  4. DIOVAN HCT [Suspect]
     Dosage: 80/12.5MG
     Route: 048

REACTIONS (3)
  - BLOOD PRESSURE DECREASED [None]
  - FLUID RETENTION [None]
  - OEDEMA PERIPHERAL [None]
